FAERS Safety Report 21467024 (Version 2)
Quarter: 2022Q4

REPORT INFORMATION
  Report Type: Report from Study
  Country: US (occurrence: US)
  Receive Date: 20221017
  Receipt Date: 20221031
  Transmission Date: 20230113
  Serious: Yes (Other)
  Sender: FDA-Public Use
  Company Number: US-HORIZON THERAPEUTICS-HZN-2022-007321

PATIENT

DRUGS (12)
  1. TEPEZZA [Suspect]
     Active Substance: TEPROTUMUMAB-TRBW
     Indication: Toxic goitre
     Dosage: 1395 MG, EVERY 3 WEEKS (INITIAL DOSE)
     Route: 042
     Dates: start: 20220720
  2. TEPEZZA [Suspect]
     Active Substance: TEPROTUMUMAB-TRBW
     Dosage: 1395 MG, EVERY 3 WEEKS (SECOND INFUSION 20MG/KG)
     Route: 042
     Dates: start: 2022
  3. TEPEZZA [Suspect]
     Active Substance: TEPROTUMUMAB-TRBW
     Dosage: 1395 MG, EVERY 3 WEEKS (THIRD INFUSION 20MG/KG)
     Route: 042
     Dates: start: 2022
  4. TEPEZZA [Suspect]
     Active Substance: TEPROTUMUMAB-TRBW
     Dosage: 1395 MG, EVERY 3 WEEKS (FOURTH INFUSION 20MG/KG)
     Route: 042
     Dates: start: 2022
  5. TEPEZZA [Suspect]
     Active Substance: TEPROTUMUMAB-TRBW
     Dosage: 1395 MG, EVERY 3 WEEKS (FIFTH INFUSION 20MG/KG)
     Route: 042
     Dates: start: 2022
  6. ACYCLOVIR [Concomitant]
     Active Substance: ACYCLOVIR
     Dosage: 800 MG
     Dates: start: 20220621
  7. METHIMAZOLE [Concomitant]
     Active Substance: METHIMAZOLE
     Dosage: 7.5 MG
     Dates: start: 20220621
  8. LORATADINE [Concomitant]
     Active Substance: LORATADINE
     Dosage: 10 MG
     Dates: start: 20220621
  9. VITAMIN B12 [Concomitant]
     Active Substance: CYANOCOBALAMIN
     Dosage: 1000 UG
     Dates: start: 20220621
  10. VITAMIN D3 [Concomitant]
     Active Substance: CHOLECALCIFEROL
     Dosage: 25000 UNITS
     Dates: start: 20220621
  11. SELENIUM [Concomitant]
     Active Substance: SELENIUM
     Dosage: 200 UG
     Dates: start: 20220621
  12. COLACE [Concomitant]
     Active Substance: DOCUSATE SODIUM
     Dosage: 1 CAPSULE

REACTIONS (7)
  - Erectile dysfunction [Not Recovered/Not Resolved]
  - Pruritus [Recovered/Resolved]
  - Skin exfoliation [Recovered/Resolved]
  - Dry skin [Recovered/Resolved]
  - Libido decreased [Not Recovered/Not Resolved]
  - Painful erection [Not Recovered/Not Resolved]
  - Penis disorder [Not Recovered/Not Resolved]

NARRATIVE: CASE EVENT DATE: 20220801
